FAERS Safety Report 5071598-8 (Version None)
Quarter: 2006Q3

REPORT INFORMATION
  Report Type: 
  Country: None (occurrence: None)
  Receive Date: 20060803
  Receipt Date: 20060803
  Transmission Date: 20061208
  Serious: Yes (Other)
  Sender: FDA-Public Use
  Company Number: None

PATIENT
  Sex: Male
  Weight: 90.7194 kg

DRUGS (1)
  1. BYETTA [Suspect]
     Indication: DIABETES MELLITUS
     Dosage: 10 MCG   BID BEFORE A MEAL   SQ
     Dates: start: 20060710, end: 20060712

REACTIONS (4)
  - HYPOGLYCAEMIA [None]
  - JOINT SWELLING [None]
  - PITTING OEDEMA [None]
  - THIRST [None]
